FAERS Safety Report 26151554 (Version 1)
Quarter: 2025Q4

REPORT INFORMATION
  Report Type: Report from Study
  Country: US (occurrence: US)
  Receive Date: 20251212
  Receipt Date: 20251212
  Transmission Date: 20260117
  Serious: Yes (Other)
  Sender: ABBVIE
  Company Number: US-ABBVIE-6119070

PATIENT
  Age: 64 Year
  Sex: Female
  Weight: 63.502 kg

DRUGS (5)
  1. RINVOQ [Suspect]
     Active Substance: UPADACITINIB
     Indication: Rheumatoid arthritis
     Dosage: FORM STRENGTH: 15 MG?DOSE FORM: PROLONGED-RELEASE TABLET
     Route: 048
     Dates: start: 20241018
  2. RINVOQ [Suspect]
     Active Substance: UPADACITINIB
     Indication: Rheumatoid arthritis
     Route: 048
     Dates: start: 20250130
  3. RINVOQ [Suspect]
     Active Substance: UPADACITINIB
     Indication: Rheumatoid arthritis
     Route: 048
     Dates: start: 20241101, end: 20250106
  4. PROLIA [Concomitant]
     Active Substance: DENOSUMAB
     Indication: Osteopenia
  5. PAXLOVID [Concomitant]
     Active Substance: NIRMATRELVIR\RITONAVIR
     Indication: COVID-19

REACTIONS (17)
  - Surgery [Recovering/Resolving]
  - Post-acute COVID-19 syndrome [Not Recovered/Not Resolved]
  - Sneezing [Recovering/Resolving]
  - Brain fog [Recovering/Resolving]
  - COVID-19 [Recovering/Resolving]
  - Discomfort [Recovering/Resolving]
  - Blood calcium increased [Not Recovered/Not Resolved]
  - Hypoglycaemia [Recovering/Resolving]
  - Cough [Recovering/Resolving]
  - Respiratory disorder [Recovering/Resolving]
  - Candida infection [Recovering/Resolving]
  - Nasopharyngitis [Recovering/Resolving]
  - Depression [Not Recovered/Not Resolved]
  - Cholecystectomy [Not Recovered/Not Resolved]
  - Heart rate irregular [Not Recovered/Not Resolved]
  - COVID-19 [Not Recovered/Not Resolved]
  - Cardiac disorder [Not Recovered/Not Resolved]

NARRATIVE: CASE EVENT DATE: 20250101
